FAERS Safety Report 6073379-5 (Version None)
Quarter: 2009Q1

REPORT INFORMATION
  Report Type: 
  Country: None (occurrence: None)
  Receive Date: 20090205
  Receipt Date: 20090128
  Transmission Date: 20090719
  Serious: Yes (Life-Threatening, Hospitalization)
  Sender: FDA-Public Use
  Company Number: PAR_02822_2009

PATIENT
  Age: 45 Year
  Sex: Male

DRUGS (4)
  1. METHYLPREDNISOLONE [Suspect]
     Indication: HEART TRANSPLANT REJECTION
     Dosage: (500 MG INTRAVENOUS)
     Route: 042
  2. CYCLOSPORINE [Concomitant]
  3. MYCOPHENOLATE MOFETIL [Concomitant]
  4. UNSPECIFIED STEROID [Concomitant]

REACTIONS (6)
  - BRADYCARDIA [None]
  - CARDIAC ARREST [None]
  - CIRCULATORY COLLAPSE [None]
  - EJECTION FRACTION DECREASED [None]
  - ORTHOPNOEA [None]
  - OXYGEN SATURATION DECREASED [None]
